FAERS Safety Report 4375866-4 (Version None)
Quarter: 2004Q2

REPORT INFORMATION
  Report Type: 
  Country: None (occurrence: None)
  Receive Date: 20040609
  Receipt Date: 20040609
  Transmission Date: 20050107
  Serious: Yes (Life-Threatening, Hospitalization)
  Sender: FDA-Public Use
  Company Number: None

PATIENT
  Age: 43 Year
  Sex: Male
  Weight: 99.7913 kg

DRUGS (2)
  1. HALPERADOL 100 MG WEEKLY [Suspect]
     Indication: SCHIZOPHRENIA, PARANOID TYPE
     Dosage: 100 MIL EVERY 2 WKS 1ST 8 MO
  2. HALPERADOL 100 MG WEEKLY [Suspect]
     Dosage: 100 MG WEEKLY

REACTIONS (6)
  - DRUG INEFFECTIVE [None]
  - HALLUCINATION, AUDITORY [None]
  - INTENTIONAL SELF-INJURY [None]
  - PHARMACEUTICAL PRODUCT COMPLAINT [None]
  - PSYCHOTIC DISORDER [None]
  - SCREAMING [None]
